FAERS Safety Report 22025180 (Version 1)
Quarter: 2023Q1

REPORT INFORMATION
  Report Type: Other
  Country: MX (occurrence: None)
  Receive Date: 20230223
  Receipt Date: 20230223
  Transmission Date: 20230418
  Serious: No
  Sender: FDA-Public Use
  Company Number: MX-ROCHE-3290172

PATIENT
  Age: 40 Year
  Sex: Male
  Weight: 93.3 kg

DRUGS (1)
  1. OCREVUS [Suspect]
     Active Substance: OCRELIZUMAB
     Indication: Primary progressive multiple sclerosis
     Dosage: OCRELIZUMAB VIAL 300MG/10ML (30MG/ML)
     Route: 042
     Dates: start: 20200310

REACTIONS (4)
  - Influenza [Unknown]
  - Pharyngitis [Unknown]
  - Nasal congestion [Unknown]
  - Hand fracture [Unknown]

NARRATIVE: CASE EVENT DATE: 20230201
